FAERS Safety Report 23575272 (Version 1)
Quarter: 2024Q1

REPORT INFORMATION
  Report Type: Spontaneous
  Country: IT (occurrence: IT)
  Receive Date: 20240228
  Receipt Date: 20240228
  Transmission Date: 20240410
  Serious: Yes (Other)
  Sender: FDA-Public Use
  Company Number: IT-JNJFOC-20240217598

PATIENT
  Age: 50 Year
  Sex: Female

DRUGS (2)
  1. LEFLUNOMIDE [Suspect]
     Active Substance: LEFLUNOMIDE
     Indication: Product used for unknown indication
     Dosage: 20 MILLIGRAM, EVERY OTHER DAY
     Route: 065
     Dates: start: 202002
  2. SIMPONI [Suspect]
     Active Substance: GOLIMUMAB
     Indication: Psoriatic arthropathy
     Dosage: 50 MILLIGRAM, EVERY MONTH
     Route: 058
     Dates: start: 202002

REACTIONS (4)
  - Sarcoidosis [Recovering/Resolving]
  - Erythema nodosum [Recovering/Resolving]
  - Epstein-Barr virus infection [Unknown]
  - Parotitis [Recovered/Resolved]

NARRATIVE: CASE EVENT DATE: 20220101
